FAERS Safety Report 4528647-2 (Version None)
Quarter: 2004Q4

REPORT INFORMATION
  Report Type: 
  Country: None (occurrence: None)
  Receive Date: 20041216
  Receipt Date: 20041206
  Transmission Date: 20050328
  Serious: Yes (Other)
  Sender: FDA-Public Use
  Company Number: 200421598GDDC

PATIENT
  Age: 54 Year
  Sex: Female

DRUGS (4)
  1. NICOTINE [Suspect]
     Indication: SMOKING CESSATION THERAPY
     Route: 062
     Dates: start: 19970101
  2. VIOXX [Suspect]
     Route: 048
  3. ALBUTEROL [Concomitant]
     Indication: ASTHMA
  4. FLUTICASONE PROPIONATE [Concomitant]
     Indication: ASTHMA
     Route: 055

REACTIONS (1)
  - CEREBROVASCULAR ACCIDENT [None]
